FAERS Safety Report 5035854-1 (Version None)
Quarter: 2006Q2

REPORT INFORMATION
  Report Type: 
  Country: None (occurrence: None)
  Receive Date: 20060526
  Receipt Date: 20060316
  Transmission Date: 20061013
  Serious: No
  Sender: FDA-Public Use
  Company Number: 223112

PATIENT
  Age: 59 Year
  Sex: Female
  Weight: 79.8 kg

DRUGS (6)
  1. RAPTIVA [Suspect]
     Indication: PSORIASIS
     Dosage: 0.8 ML,1/WEEK, SUBCUTANEOUS
     Route: 058
     Dates: start: 20051229, end: 20060302
  2. CARDIZEM [Concomitant]
  3. LASIX [Concomitant]
  4. ORTHO-EST [Concomitant]
  5. ZYRTEC [Concomitant]
  6. NEXIUM [Concomitant]

REACTIONS (1)
  - HERPES ZOSTER [None]
